FAERS Safety Report 5486182-1 (Version None)
Quarter: 2007Q4

REPORT INFORMATION
  Report Type: 
  Country: None (occurrence: None)
  Receive Date: 20071012
  Receipt Date: 20070926
  Transmission Date: 20080405
  Serious: Yes (Other)
  Sender: FDA-Public Use
  Company Number: 2006000938

PATIENT
  Age: 78 Year
  Sex: Female

DRUGS (1)
  1. MACUGEN [Suspect]
     Indication: ILL-DEFINED DISORDER
     Dosage: 0.3 MG, Q6 WEEKS

REACTIONS (2)
  - RETINAL DETACHMENT [None]
  - RETINAL TEAR [None]
